FAERS Safety Report 7520932-5 (Version None)
Quarter: 2011Q2

REPORT INFORMATION
  Report Type: 
  Country: None (occurrence: None)
  Receive Date: 20110603
  Receipt Date: 20101130
  Transmission Date: 20111010
  Serious: Yes (Hospitalization)
  Sender: FDA-Public Use
  Company Number: IT-BAYER-2010-001434

PATIENT
  Age: 25 Year
  Sex: Female

DRUGS (1)
  1. CIPROFLOXACIN [Suspect]
     Indication: GASTROENTERITIS
     Dosage: 400 MG, BID
     Route: 042
     Dates: start: 20101028, end: 20101102

REACTIONS (4)
  - PRESYNCOPE [None]
  - DYSPNOEA [None]
  - HYPERHIDROSIS [None]
  - HYPOGLYCAEMIA [None]
